FAERS Safety Report 23949070 (Version 1)
Quarter: 2024Q2

REPORT INFORMATION
  Report Type: Spontaneous
  Country: US (occurrence: US)
  Receive Date: 20240607
  Receipt Date: 20240607
  Transmission Date: 20240717
  Serious: No
  Sender: FDA-Public Use
  Company Number: US-TAKEDA-2024TUS056464

PATIENT
  Sex: Male

DRUGS (1)
  1. VYVANSE [Suspect]
     Active Substance: LISDEXAMFETAMINE DIMESYLATE
     Indication: Hypersomnia
     Dosage: 40 MILLIGRAM
     Route: 065

REACTIONS (3)
  - Economic problem [Unknown]
  - Fatigue [Unknown]
  - Product use in unapproved indication [Unknown]
